FAERS Safety Report 16577372 (Version 1)
Quarter: 2019Q3

REPORT INFORMATION
  Report Type: Spontaneous
  Country: US (occurrence: US)
  Receive Date: 20190716
  Receipt Date: 20190716
  Transmission Date: 20191004
  Serious: Yes (Other)
  Sender: FDA-Public Use
  Company Number: US-PFIZER INC-2019296873

PATIENT
  Age: 54 Year

DRUGS (2)
  1. XANAX [Suspect]
     Active Substance: ALPRAZOLAM
     Dosage: 0.5 MG, 2X/DAY
  2. XANAX [Suspect]
     Active Substance: ALPRAZOLAM
     Dosage: UNK (0.5MG BUT I ONLY TAKE 1/2 A DAY)

REACTIONS (4)
  - Anxiety [Unknown]
  - Intentional product use issue [Unknown]
  - Nausea [Unknown]
  - Spinal fracture [Unknown]
